FAERS Safety Report 9150265 (Version 2)
Quarter: 2013Q1

REPORT INFORMATION
  Report Type: Spontaneous
  Country: US (occurrence: US)
  Receive Date: 20130308
  Receipt Date: 20130320
  Transmission Date: 20140127
  Serious: No
  Sender: FDA-Public Use
  Company Number: US-009507513-1303USA003576

PATIENT
  Sex: 0

DRUGS (2)
  1. STERILE DILUENT [Suspect]
     Dosage: UNK
     Route: 058
     Dates: start: 20121023
  2. ZOSTAVAX [Suspect]
     Indication: PROPHYLAXIS
     Route: 058
     Dates: start: 20121023, end: 20121023

REACTIONS (2)
  - Expired drug administered [Unknown]
  - No adverse event [Unknown]
